FAERS Safety Report 8584124-3 (Version None)
Quarter: 2012Q3

REPORT INFORMATION
  Report Type: 
  Country: None (occurrence: None)
  Receive Date: 20120810
  Receipt Date: 20120806
  Transmission Date: 20120928
  Serious: Yes (Hospitalization, Other)
  Sender: FDA-Public Use
  Company Number: US-009507513-2011SP046641

PATIENT

DRUGS (2)
  1. NUVARING [Suspect]
     Indication: CONTRACEPTION
     Dates: start: 20080101, end: 20091101
  2. LEXAPRO [Concomitant]
     Indication: PRODUCT USED FOR UNKNOWN INDICATION
     Dates: start: 20090801, end: 20100801

REACTIONS (9)
  - HYPERLIPIDAEMIA [None]
  - DIVERTICULITIS [None]
  - CEREBRAL ARTERY OCCLUSION [None]
  - CEREBRAL INFARCTION [None]
  - LIMB INJURY [None]
  - LIPIDS INCREASED [None]
  - ATTENTION DEFICIT/HYPERACTIVITY DISORDER [None]
  - THROMBOCYTOSIS [None]
  - DYSTHYMIC DISORDER [None]
